FAERS Safety Report 6241566-9 (Version None)
Quarter: 2009Q2

REPORT INFORMATION
  Report Type: 
  Country: None (occurrence: None)
  Receive Date: 20090623
  Receipt Date: 20031231
  Transmission Date: 20091009
  Serious: Yes (Life-Threatening, Other)
  Sender: FDA-Public Use
  Company Number: TR-ROCHE-352895

PATIENT
  Sex: Male
  Weight: 55 kg

DRUGS (10)
  1. DACLIZUMAB [Suspect]
     Route: 065
  2. MYCOPHENOLATE MOFETIL [Suspect]
     Route: 048
     Dates: start: 20031020
  3. MYCOPHENOLATE MOFETIL [Suspect]
     Dosage: DOSE REDUCED.
     Route: 048
  4. CYCLOSPORINE [Suspect]
     Route: 048
     Dates: start: 20031020, end: 20031124
  5. TACROLIMUS [Suspect]
     Route: 065
  6. SIROLIMUS [Suspect]
     Route: 065
  7. PREDNISOLONE [Suspect]
     Route: 048
     Dates: start: 20031020
  8. SULFAMETHOXAZOLE AND TRIMETHOPRIM [Concomitant]
     Route: 048
     Dates: start: 20031020
  9. ACYCLOVIR [Concomitant]
     Route: 048
     Dates: start: 20031020
  10. FAMOTIDINE [Concomitant]
     Route: 048
     Dates: start: 20031020

REACTIONS (2)
  - CONVULSION [None]
  - ENCEPHALITIS [None]
